FAERS Safety Report 7460229-5 (Version None)
Quarter: 2011Q2

REPORT INFORMATION
  Report Type: 
  Country: None (occurrence: None)
  Receive Date: 20110505
  Receipt Date: 20110428
  Transmission Date: 20111010
  Serious: Yes (Other)
  Sender: FDA-Public Use
  Company Number: FR-NOVOPROD-327336

PATIENT
  Age: 43 Year
  Sex: Female

DRUGS (3)
  1. VICTOZA [Suspect]
     Indication: PRODUCT USED FOR UNKNOWN INDICATION
     Dosage: UNK
     Route: 065
  2. COKENZEN [Concomitant]
  3. METFORMIN [Concomitant]

REACTIONS (2)
  - BLOOD CREATININE INCREASED [None]
  - DIARRHOEA [None]
